FAERS Safety Report 4512293-0 (Version None)
Quarter: 2004Q4

REPORT INFORMATION
  Report Type: 
  Country: None (occurrence: None)
  Receive Date: 20041123
  Receipt Date: 20041116
  Transmission Date: 20050328
  Serious: Yes (Life-Threatening)
  Sender: FDA-Public Use
  Company Number: 2004PK01954

PATIENT
  Age: 29 Year
  Sex: Male
  Weight: 70 kg

DRUGS (1)
  1. SCANDICAIN ^ASTRA^ [Suspect]
     Indication: LOCAL ANAESTHESIA
     Dosage: 1% ONCE SQ
     Route: 058
     Dates: start: 20041111

REACTIONS (7)
  - BLOOD PRESSURE DECREASED [None]
  - BRADYCARDIA [None]
  - CIRCULATORY COLLAPSE [None]
  - CONVULSION [None]
  - LOSS OF CONSCIOUSNESS [None]
  - NAUSEA [None]
  - TREMOR [None]
